FAERS Safety Report 6806591-5 (Version None)
Quarter: 2010Q2

REPORT INFORMATION
  Report Type: 
  Country: None (occurrence: None)
  Receive Date: 20100629
  Receipt Date: 20080403
  Transmission Date: 20101027
  Serious: No
  Sender: FDA-Public Use
  Company Number: US-PFIZER INC-2008027149

PATIENT
  Sex: Male
  Weight: 90.9 kg

DRUGS (10)
  1. VIAGRA [Suspect]
     Indication: ERECTILE DYSFUNCTION
  2. CENTRUM [Concomitant]
  3. COZAAR [Concomitant]
  4. UROXATRAL [Concomitant]
  5. TOPROL-XL [Concomitant]
  6. AVODART [Concomitant]
  7. CRESTOR [Concomitant]
  8. NORVASC [Concomitant]
  9. NEXIUM [Concomitant]
  10. PAXIL [Concomitant]

REACTIONS (2)
  - CYANOPSIA [None]
  - DRUG INEFFECTIVE [None]
